FAERS Safety Report 7597924-3 (Version None)
Quarter: 2011Q3

REPORT INFORMATION
  Report Type: 
  Country: None (occurrence: None)
  Receive Date: 20110708
  Receipt Date: 20110629
  Transmission Date: 20111222
  Serious: Yes (Death, Hospitalization, Other)
  Sender: FDA-Public Use
  Company Number: CH-GENZYME-THYM-1002564

PATIENT
  Age: 37 Year
  Sex: Female

DRUGS (2)
  1. THYMOGLOBULIN [Suspect]
     Indication: BONE MARROW CONDITIONING REGIMEN
     Route: 042
  2. CYCLOPHOSPHAMIDE [Concomitant]
     Indication: BONE MARROW CONDITIONING REGIMEN
     Route: 065

REACTIONS (7)
  - PNEUMONIA VIRAL [None]
  - EPSTEIN-BARR VIRUS ASSOCIATED LYMPHOPROLIFERATIVE DISORDER [None]
  - LYMPHOCYTE COUNT DECREASED [None]
  - PYREXIA [None]
  - MULTI-ORGAN FAILURE [None]
  - HISTIOCYTOSIS HAEMATOPHAGIC [None]
  - SYSTEMIC INFLAMMATORY RESPONSE SYNDROME [None]
